FAERS Safety Report 12423097 (Version 1)
Quarter: 2016Q2

REPORT INFORMATION
  Report Type: Spontaneous
  Country: GB (occurrence: GB)
  Receive Date: 20160601
  Receipt Date: 20160601
  Transmission Date: 20160815
  Serious: Yes (Other)
  Sender: FDA-Public Use
  Company Number: GB-ACCORD-040905

PATIENT
  Age: 9 Year
  Sex: Female
  Weight: 30 kg

DRUGS (15)
  1. PREDNISOLONE. [Concomitant]
     Active Substance: PREDNISOLONE
  2. SEPTRIN [Concomitant]
     Active Substance: SULFAMETHOXAZOLE\TRIMETHOPRIM
  3. APREPITANT. [Concomitant]
     Active Substance: APREPITANT
  4. NYSTATIN/NYSTATIN/LIPOSOME [Concomitant]
  5. ONDANSETRON [Concomitant]
     Active Substance: ONDANSETRON
  6. PARACETAMOL [Concomitant]
     Active Substance: ACETAMINOPHEN
  7. SALBUTAMOL [Concomitant]
     Active Substance: ALBUTEROL
  8. TACROLIMUS. [Suspect]
     Active Substance: TACROLIMUS
     Indication: PRODUCT USED FOR UNKNOWN INDICATION
  9. ELVANSE [Concomitant]
     Active Substance: LISDEXAMFETAMINE DIMESYLATE
  10. METHYLPHENIDATE. [Concomitant]
     Active Substance: METHYLPHENIDATE
  11. RANITIDINE. [Concomitant]
     Active Substance: RANITIDINE
  12. ATROVENT [Concomitant]
     Active Substance: IPRATROPIUM BROMIDE
  13. AZATHIOPRINE. [Concomitant]
     Active Substance: AZATHIOPRINE
  14. TOPIRAMATE. [Interacting]
     Active Substance: TOPIRAMATE
     Indication: CYCLIC VOMITING SYNDROME
     Dosage: INCREASING DOSE UPTO 50 MG TWICE DAILY
     Route: 048
  15. MODIGRAF [Concomitant]
     Active Substance: TACROLIMUS

REACTIONS (4)
  - Blood creatinine increased [Unknown]
  - Drug interaction [Recovered/Resolved]
  - Off label use [Unknown]
  - Drug level decreased [Recovered/Resolved]
